FAERS Safety Report 8685032 (Version 2)
Quarter: 2013Q4

REPORT INFORMATION
  Report Type: Spontaneous
  Country: US (occurrence: US)
  Receive Date: 20120726
  Receipt Date: 20131101
  Transmission Date: 20140711
  Serious: No
  Sender: FDA-Public Use
  Company Number: US-009507513-1207USA004218

PATIENT
  Sex: Female

DRUGS (3)
  1. COSOPT [Suspect]
     Dosage: UNK
  2. XALATAN [Suspect]
  3. ALPHAGAN [Suspect]

REACTIONS (1)
  - Ocular hyperaemia [Unknown]
